FAERS Safety Report 5797193-0 (Version None)
Quarter: 2008Q3

REPORT INFORMATION
  Report Type: 
  Country: None (occurrence: None)
  Receive Date: 20080701
  Receipt Date: 20080624
  Transmission Date: 20090109
  Serious: Yes (Other)
  Sender: FDA-Public Use
  Company Number: FR-PFIZER INC-2008046249

PATIENT
  Sex: Female
  Weight: 57 kg

DRUGS (1)
  1. RELPAX [Suspect]
     Indication: MIGRAINE
     Route: 048
     Dates: start: 20080503, end: 20080505

REACTIONS (2)
  - CAROTID ARTERY DISSECTION [None]
  - TINNITUS [None]
